FAERS Safety Report 7755280-1 (Version None)
Quarter: 2011Q3

REPORT INFORMATION
  Report Type: 
  Country: None (occurrence: None)
  Receive Date: 20110916
  Receipt Date: 20110912
  Transmission Date: 20111222
  Serious: Yes (Other)
  Sender: FDA-Public Use
  Company Number: US-PFIZER INC-2011214179

PATIENT
  Sex: Female
  Weight: 79.365 kg

DRUGS (4)
  1. TOVIAZ [Suspect]
     Indication: POLLAKIURIA
     Dosage: 8 MG, 1X/DAY
     Route: 048
     Dates: end: 20110911
  2. LYRICA [Concomitant]
     Indication: FIBROMYALGIA
  3. LYRICA [Concomitant]
     Indication: NEUROPATHY PERIPHERAL
     Dosage: 200 MG, 3X/DAY
     Route: 048
  4. VITAMIN TAB [Concomitant]
     Dosage: UNK
     Route: 048

REACTIONS (2)
  - URINARY INCONTINENCE [None]
  - NOCTURIA [None]
